FAERS Safety Report 4373579-6 (Version None)
Quarter: 2004Q1

REPORT INFORMATION
  Report Type: 
  Country: None (occurrence: None)
  Receive Date: 20040305
  Receipt Date: 20031118
  Transmission Date: 20041129
  Serious: Yes (Other)
  Sender: FDA-Public Use
  Company Number: 2003UW14007

PATIENT
  Age: 73 Year
  Sex: Female
  Weight: 73.9363 kg

DRUGS (3)
  1. CRESTOR [Suspect]
     Indication: BLOOD CHOLESTEROL INCREASED
     Dosage: 10 MG PO
     Route: 048
  2. ASPIRIN [Concomitant]
  3. EXCEDRIN (MIGRAINE) [Concomitant]

REACTIONS (4)
  - ABNORMAL DREAMS [None]
  - DRY MOUTH [None]
  - HEART RATE INCREASED [None]
  - NIGHT SWEATS [None]
